FAERS Safety Report 12287808 (Version 1)
Quarter: 2016Q2

REPORT INFORMATION
  Report Type: Spontaneous
  Country: FR (occurrence: LU)
  Receive Date: 20160420
  Receipt Date: 20160420
  Transmission Date: 20160815
  Serious: Yes (Hospitalization)
  Sender: FDA-Public Use
  Company Number: LU-FRESENIUS KABI-FK201601939

PATIENT
  Age: 33 Year
  Sex: Female

DRUGS (6)
  1. KETANEST [Suspect]
     Active Substance: KETAMINE HYDROCHLORIDE
     Indication: GENERAL ANAESTHESIA
     Route: 065
  2. CEFUROXIM FRESENIUS 1500 MG [Suspect]
     Active Substance: CEFUROXIME
     Indication: ANTIBIOTIC THERAPY
     Route: 042
     Dates: start: 20151124, end: 20151124
  3. ULTIVA [Suspect]
     Active Substance: REMIFENTANIL HYDROCHLORIDE
     Indication: GENERAL ANAESTHESIA
     Route: 042
     Dates: start: 20151124, end: 20151124
  4. POLARAMINE [Suspect]
     Active Substance: DEXCHLORPHENIRAMINE MALEATE
     Indication: GENERAL ANAESTHESIA
     Route: 042
     Dates: start: 20151124, end: 20151124
  5. NAROPIN [Suspect]
     Active Substance: ROPIVACAINE HYDROCHLORIDE
     Indication: NEUROMUSCULAR BLOCKADE
     Route: 053
     Dates: start: 20151124, end: 20151124
  6. PROPOFOL 1% FRESENIUS [Suspect]
     Active Substance: PROPOFOL
     Indication: GENERAL ANAESTHESIA
     Route: 040
     Dates: start: 20151124, end: 20151124

REACTIONS (1)
  - Anaphylactic reaction [Recovered/Resolved]

NARRATIVE: CASE EVENT DATE: 20151124
